FAERS Safety Report 5233942-8 (Version None)
Quarter: 2007Q1

REPORT INFORMATION
  Report Type: 
  Country: None (occurrence: None)
  Receive Date: 20070208
  Receipt Date: 20070130
  Transmission Date: 20070707
  Serious: Yes (Life-Threatening, Hospitalization, Other)
  Sender: FDA-Public Use
  Company Number: 2005PK02384

PATIENT
  Age: 27361 Day
  Sex: Female
  Weight: 83.8 kg

DRUGS (5)
  1. ARIMIDEX [Suspect]
     Indication: BREAST CANCER
     Route: 048
     Dates: start: 20040720, end: 20051114
  2. ARIMIDEX [Suspect]
     Route: 048
     Dates: start: 20051207, end: 20060311
  3. ARIMIDEX [Suspect]
     Route: 048
     Dates: start: 20060313, end: 20060720
  4. BLOPRESS [Concomitant]
     Indication: HYPERTENSION
     Route: 048
  5. PANTOPRAZOLE SODIUM [Concomitant]
     Indication: PROPHYLAXIS AGAINST GASTROINTESTINAL ULCER
     Route: 048
     Dates: start: 20060312

REACTIONS (2)
  - CHOLELITHIASIS [None]
  - PANCREATITIS ACUTE [None]
